FAERS Safety Report 5130888-0 (Version None)
Quarter: 2006Q4

REPORT INFORMATION
  Report Type: 
  Country: None (occurrence: None)
  Receive Date: 20061017
  Receipt Date: 20061017
  Transmission Date: 20070319
  Serious: No
  Sender: FDA-Public Use
  Company Number: None

PATIENT
  Sex: Female
  Weight: 83.9154 kg

DRUGS (4)
  1. MIRENA [Suspect]
     Indication: CONTRACEPTION
     Dosage: DAILY INTRA-UTERI
     Route: 015
     Dates: start: 20060202, end: 20061019
  2. MIRENA [Suspect]
     Indication: MENORRHAGIA
     Dosage: DAILY INTRA-UTERI
     Route: 015
     Dates: start: 20060202, end: 20061019
  3. LEXAPRO [Concomitant]
  4. LEVSIN [Concomitant]

REACTIONS (9)
  - ABDOMINAL PAIN [None]
  - ACNE [None]
  - ALOPECIA [None]
  - AMENORRHOEA [None]
  - BACK PAIN [None]
  - DIZZINESS [None]
  - MUSCLE SPASMS [None]
  - NERVOUSNESS [None]
  - WEIGHT INCREASED [None]
